FAERS Safety Report 10083243 (Version 1)
Quarter: 2014Q2

REPORT INFORMATION
  Report Type: Spontaneous
  Country: US (occurrence: None)
  Receive Date: 20140415
  Receipt Date: 20140415
  Transmission Date: 20141212
  Serious: No
  Sender: FDA-Public Use
  Company Number: None

PATIENT
  Age: 54 Year
  Sex: Female
  Weight: 71.67 kg

DRUGS (1)
  1. CREST 3D WHITENING LUSTROUS SMILE PROCTOR AND GAMBLE [Suspect]
     Indication: TOOTH DISCOLOURATION
     Dates: start: 20140316, end: 20140413

REACTIONS (6)
  - Mouth ulceration [None]
  - Oropharyngeal pain [None]
  - Tongue ulceration [None]
  - Lip ulceration [None]
  - Oral mucosal exfoliation [None]
  - Oral pain [None]
